FAERS Safety Report 6029201-6 (Version None)
Quarter: 2009Q1

REPORT INFORMATION
  Report Type: 
  Country: None (occurrence: None)
  Receive Date: 20090106
  Receipt Date: 20081229
  Transmission Date: 20090719
  Serious: Yes (Other)
  Sender: FDA-Public Use
  Company Number: GR-ROXANE LABORATORIES, INC.-2008-RO-00476RO

PATIENT
  Age: 31 Year
  Sex: Male

DRUGS (5)
  1. OXCARBAZEPINE [Suspect]
     Dosage: 1200MG
  2. OXCARBAZEPINE [Suspect]
     Dosage: 600MG
  3. AMISULPRIDE [Suspect]
     Indication: SCHIZOPHRENIA
     Dosage: 800MG
  4. AMANTADINE HCL [Concomitant]
     Dosage: 20MG
  5. L-DOPA [Concomitant]
     Dosage: 125MG

REACTIONS (3)
  - DRUG INTERACTION [None]
  - ELECTROENCEPHALOGRAM ABNORMAL [None]
  - NEUROLEPTIC MALIGNANT SYNDROME [None]
